FAERS Safety Report 5731457-1 (Version None)
Quarter: 2008Q2

REPORT INFORMATION
  Report Type: 
  Country: None (occurrence: None)
  Receive Date: 20080508
  Receipt Date: 20080502
  Transmission Date: 20081010
  Serious: Yes (Other)
  Sender: FDA-Public Use
  Company Number: US-ASTRAZENECA-2008UW08998

PATIENT
  Age: 83 Year
  Sex: Male

DRUGS (8)
  1. TOPROL-XL [Suspect]
     Route: 048
  2. SORINE [Suspect]
     Indication: VENTRICULAR ARRHYTHMIA
     Route: 048
     Dates: start: 20080419
  3. SORINE [Suspect]
     Route: 048
     Dates: start: 20070101, end: 20080418
  4. FINASTERIDE [Concomitant]
  5. ATORVASTATIN CALCIUM [Concomitant]
  6. ASPIRIN [Concomitant]
  7. MAGNESIUM [Concomitant]
  8. MULTI-VITAMIN [Concomitant]

REACTIONS (7)
  - ASTHENIA [None]
  - DYSPNOEA [None]
  - ELECTROCARDIOGRAM QT PROLONGED [None]
  - FATIGUE [None]
  - LETHARGY [None]
  - SYNCOPE [None]
  - VENTRICULAR TACHYCARDIA [None]
